FAERS Safety Report 4951152-6 (Version None)
Quarter: 2006Q1

REPORT INFORMATION
  Report Type: 
  Country: None (occurrence: None)
  Receive Date: 20060315
  Receipt Date: 20060224
  Transmission Date: 20060701
  Serious: Yes (Other)
  Sender: FDA-Public Use
  Company Number: FR200602004001

PATIENT
  Age: 66 Year
  Sex: Female

DRUGS (1)
  1. EVISTA [Suspect]
     Indication: OSTEOPOROSIS
     Dosage: 60 MG DAILY (1/D) ORAL
     Route: 048
     Dates: start: 20040101

REACTIONS (4)
  - BONE MARROW DISORDER [None]
  - HOT FLUSH [None]
  - LYMPHOMA [None]
  - MUSCLE SPASMS [None]
